FAERS Safety Report 9303903 (Version 1)
Quarter: 2013Q2

REPORT INFORMATION
  Report Type: Spontaneous
  Country: CN (occurrence: CN)
  Receive Date: 20130522
  Receipt Date: 20130522
  Transmission Date: 20140414
  Serious: Yes (Other)
  Sender: FDA-Public Use
  Company Number: CN-ASTRAZENECA-2013SE35683

PATIENT
  Age: 81 Year
  Sex: Male
  Weight: 66.5 kg

DRUGS (2)
  1. BICALUTAMIDE [Suspect]
     Indication: PROSTATE CANCER
     Route: 048
     Dates: start: 20110907, end: 20110910
  2. GOSERELIN [Suspect]
     Indication: PROSTATE CANCER
     Route: 058
     Dates: start: 20110907, end: 20110907

REACTIONS (2)
  - Haematuria [Recovering/Resolving]
  - Dysuria [Recovering/Resolving]
